FAERS Safety Report 5419708-4 (Version None)
Quarter: 2007Q3

REPORT INFORMATION
  Report Type: 
  Country: None (occurrence: None)
  Receive Date: 20070718
  Receipt Date: 20060828
  Transmission Date: 20080115
  Serious: Yes (Other)
  Sender: FDA-Public Use
  Company Number: 2006107215

PATIENT
  Age: 32 Year
  Sex: Female
  Weight: 63.5036 kg

DRUGS (10)
  1. CELEBREX [Suspect]
     Indication: ARTHRITIS
     Dosage: ORAL
     Route: 048
     Dates: start: 20030101
  2. ASTELIN [Concomitant]
  3. FLONASE [Concomitant]
  4. PATANOL [Concomitant]
  5. DECONAMINE (CHLORPHENAMINE MALEATE, PSEUDOEPHEDRINE HYDROCHLORIDE) [Concomitant]
  6. CELEXA [Concomitant]
  7. LIBRAX [Concomitant]
  8. LEVBID (HYOSCYAMINE SULFATE) [Concomitant]
  9. VYTORIN [Concomitant]
  10. VICODIN [Concomitant]

REACTIONS (2)
  - DEAFNESS [None]
  - FIBROMYALGIA [None]
